FAERS Safety Report 21495577 (Version 2)
Quarter: 2022Q4

REPORT INFORMATION
  Report Type: Report from Study
  Country: CO (occurrence: CO)
  Receive Date: 20221022
  Receipt Date: 20221221
  Transmission Date: 20230113
  Serious: Yes (Death, Hospitalization)
  Sender: FDA-Public Use
  Company Number: CO-ABBVIE-22K-036-4523601-00

PATIENT
  Sex: Male
  Weight: 59 kg

DRUGS (1)
  1. VENCLEXTA [Suspect]
     Active Substance: VENETOCLAX
     Indication: Acute myeloid leukaemia
     Route: 048
     Dates: start: 20220811, end: 20220828

REACTIONS (5)
  - Death [Fatal]
  - Fungal infection [Not Recovered/Not Resolved]
  - Aptyalism [Not Recovered/Not Resolved]
  - Bacterial sepsis [Not Recovered/Not Resolved]
  - Malnutrition [Recovering/Resolving]

NARRATIVE: CASE EVENT DATE: 20220101
